FAERS Safety Report 8368884-2 (Version None)
Quarter: 2012Q2

REPORT INFORMATION
  Report Type: 
  Country: None (occurrence: None)
  Receive Date: 20120516
  Receipt Date: 20120508
  Transmission Date: 20120825
  Serious: Yes (Other)
  Sender: FDA-Public Use
  Company Number: 2012HGS-003537

PATIENT
  Age: 45 Year
  Sex: Female
  Weight: 92 kg

DRUGS (4)
  1. PARACETAMOL (PARACETAMOL) (PARACETAMOL) [Concomitant]
  2. INSULIN (INSULIN) (INSULIN) [Concomitant]
  3. BENLYSTA [Suspect]
     Indication: SYSTEMIC LUPUS ERYTHEMATOSUS
     Dosage: 10 MG/KG, 1 IN 1 M, INTRAVENOUS DRIP
     Route: 041
     Dates: start: 20111108
  4. IBUPROFEN TABLETS [Concomitant]

REACTIONS (4)
  - BLOOD ALKALINE PHOSPHATASE INCREASED [None]
  - BLOOD BILIRUBIN INCREASED [None]
  - GAMMA-GLUTAMYLTRANSFERASE INCREASED [None]
  - HEPATIC ENZYME INCREASED [None]
